FAERS Safety Report 24898942 (Version 1)
Quarter: 2025Q1

REPORT INFORMATION
  Report Type: Spontaneous
  Country: US (occurrence: None)
  Receive Date: 20250128
  Receipt Date: 20250128
  Transmission Date: 20250408
  Serious: Yes (Death)
  Sender: FDA-CTU
  Company Number: None

PATIENT
  Age: 59 Year
  Sex: Female

DRUGS (12)
  1. TADALAFIL [Suspect]
     Active Substance: TADALAFIL
     Indication: Pulmonary arterial hypertension
     Dosage: 20MG QD ORAL ?
     Route: 048
     Dates: start: 20190325, end: 20241208
  2. AMBRISENTAN [Concomitant]
     Active Substance: AMBRISENTAN
  3. FUROSEMIDE [Concomitant]
     Active Substance: FUROSEMIDE
  4. PERCOCET [Concomitant]
     Active Substance: ACETAMINOPHEN\OXYCODONE HYDROCHLORIDE
  5. NALOXONE [Concomitant]
     Active Substance: NALOXONE
  6. SEPTRA DS [Concomitant]
     Active Substance: SULFAMETHOXAZOLE\TRIMETHOPRIM
  7. PREDNISONE [Concomitant]
     Active Substance: PREDNISONE
  8. KEPPRA [Concomitant]
     Active Substance: LEVETIRACETAM
  9. VITAMIN B6 [Concomitant]
     Active Substance: PYRIDOXINE HYDROCHLORIDE
  10. NICORETTE [Concomitant]
     Active Substance: NICOTINE
  11. ALBUTEROL SULFATE [Concomitant]
     Active Substance: ALBUTEROL SULFATE
  12. FAMOTIDINE [Concomitant]
     Active Substance: FAMOTIDINE

REACTIONS (2)
  - Metastatic neoplasm [None]
  - Malignant neoplasm progression [None]

NARRATIVE: CASE EVENT DATE: 20241208
